FAERS Safety Report 5599335-9 (Version None)
Quarter: 2008Q1

REPORT INFORMATION
  Report Type: 
  Country: None (occurrence: None)
  Receive Date: 20080122
  Receipt Date: 20080113
  Transmission Date: 20080703
  Serious: Yes (Death, Hospitalization)
  Sender: FDA-Public Use
  Company Number: NL-PFIZER INC-2007076602

PATIENT
  Sex: Female
  Weight: 61 kg

DRUGS (4)
  1. SUTENT [Suspect]
     Indication: METASTATIC RENAL CELL CARCINOMA
     Route: 048
  2. ENALAPRIL MALEATE [Concomitant]
  3. NIFEDIPINE [Concomitant]
     Dates: start: 20070501
  4. OXAZEPAM [Concomitant]

REACTIONS (6)
  - DEATH [None]
  - FATIGUE [None]
  - HAEMOGLOBIN DECREASED [None]
  - INTESTINAL PERFORATION [None]
  - MUSCULOSKELETAL DISCOMFORT [None]
  - WEIGHT DECREASED [None]
